FAERS Safety Report 5709665-5 (Version None)
Quarter: 2008Q2

REPORT INFORMATION
  Report Type: 
  Country: None (occurrence: None)
  Receive Date: 20080418
  Receipt Date: 20080408
  Transmission Date: 20081010
  Serious: Yes (Hospitalization, Other)
  Sender: FDA-Public Use
  Company Number: AU-WYE-H03538808

PATIENT
  Sex: Male

DRUGS (5)
  1. TACROLIMUS [Suspect]
     Indication: PROPHYLAXIS AGAINST TRANSPLANT REJECTION
     Dosage: 2 MG AM/1 MG PM
     Route: 048
     Dates: start: 20070720
  2. PREDNISONE [Concomitant]
     Indication: IMMUNOSUPPRESSANT DRUG THERAPY
     Route: 048
     Dates: start: 20070719
  3. AZATHIOPRINE [Concomitant]
     Indication: IMMUNOSUPPRESSANT DRUG THERAPY
     Route: 048
     Dates: start: 20070725
  4. RESPRIM [Concomitant]
     Indication: ANTIVIRAL PROPHYLAXIS
     Dosage: 200/80, UNITS NOT PROVIDED, 3 TIMES PER WEEK
     Route: 048
     Dates: start: 20070723
  5. TEMAZEPAM [Concomitant]
     Indication: SEDATION
     Route: 048
     Dates: start: 20070723

REACTIONS (1)
  - HEPATIC CANCER METASTATIC [None]
